FAERS Safety Report 4503850-6 (Version None)
Quarter: 2004Q4

REPORT INFORMATION
  Report Type: 
  Country: None (occurrence: None)
  Receive Date: 20041117
  Receipt Date: 20041109
  Transmission Date: 20050328
  Serious: Yes (Life-Threatening, Hospitalization)
  Sender: FDA-Public Use
  Company Number: US-MERCK-0411USA01751

PATIENT
  Age: 47 Year
  Sex: Male

DRUGS (1)
  1. VIOXX [Suspect]
     Indication: ARTHRITIS
     Route: 048

REACTIONS (2)
  - CARDIAC DISORDER [None]
  - CEREBROVASCULAR ACCIDENT [None]
